FAERS Safety Report 14992376 (Version 1)
Quarter: 2018Q2

REPORT INFORMATION
  Report Type: Spontaneous
  Country: DK (occurrence: DK)
  Receive Date: 20180609
  Receipt Date: 20180609
  Transmission Date: 20180711
  Serious: Yes (Disabling, Other)
  Sender: FDA-Public Use
  Company Number: DK-AMGEN-DNKSP2018075179

PATIENT
  Age: 90 Year
  Sex: Female

DRUGS (2)
  1. PROLIA [Suspect]
     Active Substance: DENOSUMAB
     Indication: OSTEOPOROSIS
     Dosage: 60 MG/ML, Q6MO (STYRKE: 60 MG/ML)
     Route: 058
     Dates: start: 20120104, end: 20180510
  2. ACLASTA [Suspect]
     Active Substance: ZOLEDRONIC ACID
     Indication: OSTEOPOROSIS
     Dosage: 5 MG, Q12MO (STYRKE: 5 MG/100 ML)
     Route: 042
     Dates: start: 2009, end: 20120104

REACTIONS (1)
  - Osteonecrosis of jaw [Not Recovered/Not Resolved]

NARRATIVE: CASE EVENT DATE: 201711
